FAERS Safety Report 4423789-4 (Version None)
Quarter: 2004Q3

REPORT INFORMATION
  Report Type: 
  Country: None (occurrence: None)
  Receive Date: 20040806
  Receipt Date: 20040715
  Transmission Date: 20050211
  Serious: Yes (Hospitalization, Other)
  Sender: FDA-Public Use
  Company Number: GBS040615082

PATIENT
  Age: 21 Year
  Sex: Male

DRUGS (1)
  1. OLANZAPINE [Suspect]
     Indication: PSYCHOTIC DISORDER
     Dosage: 15 MG DAY
     Route: 048
     Dates: start: 20040401

REACTIONS (4)
  - BACK PAIN [None]
  - BLOOD ALKALINE PHOSPHATASE INCREASED [None]
  - CHEST PAIN [None]
  - MUSCULOSKELETAL PAIN [None]
